FAERS Safety Report 9923785 (Version 3)
Quarter: 2014Q1

REPORT INFORMATION
  Report Type: Report from Study
  Country: FR (occurrence: FR)
  Receive Date: 20140225
  Receipt Date: 20140314
  Transmission Date: 20141002
  Serious: Yes (Hospitalization)
  Sender: FDA-Public Use
  Company Number: FR-ABBVIE-14P-056-1206072-00

PATIENT
  Age: 46 Year
  Sex: Male
  Weight: 120 kg

DRUGS (6)
  1. NORVIR [Suspect]
     Indication: HIV INFECTION
     Dates: start: 20130107
  2. REYATAZ [Concomitant]
     Indication: HIV INFECTION
     Dates: start: 20130107
  3. TRUVADA [Concomitant]
     Indication: HIV INFECTION
     Dosage: 200MG/45MG
     Dates: start: 20130107
  4. BACTRIM [Concomitant]
     Indication: INFECTION PROPHYLAXIS
     Dosage: 400MG/80MG
     Dates: start: 20130305
  5. RAMIPRIL [Concomitant]
     Indication: HYPERTENSION
     Dates: start: 20130413
  6. UVEDOSE [Concomitant]
     Indication: PRODUCT USED FOR UNKNOWN INDICATION
     Dates: start: 20130725

REACTIONS (1)
  - Cystic lymphangioma [Unknown]
